FAERS Safety Report 5041252-7 (Version None)
Quarter: 2006Q2

REPORT INFORMATION
  Report Type: 
  Country: None (occurrence: None)
  Receive Date: 20060626
  Receipt Date: 20060609
  Transmission Date: 20061013
  Serious: Yes (Other)
  Sender: FDA-Public Use
  Company Number: GXKR2006US03269

PATIENT
  Age: 72 Year
  Sex: Male

DRUGS (9)
  1. MIRTAZAPINE [Suspect]
     Indication: DEPRESSION
     Dosage: 7.5 MG, ORAL
     Route: 048
  2. ATENOLOL [Concomitant]
  3. CHOLESTYRAMINE RESIN (COLESTYRAMINE) [Concomitant]
  4. PARACETAMOL [Concomitant]
  5. PROCHLORPERAZINE [Concomitant]
  6. INSULIN [Concomitant]
  7. ALBUTEROL [Concomitant]
  8. LISINOPRIL [Concomitant]
  9. VANCOMYCIN [Concomitant]

REACTIONS (4)
  - BLOOD OSMOLARITY DECREASED [None]
  - BLOOD UREA INCREASED [None]
  - DELIRIUM [None]
  - HYPONATRAEMIA [None]
